FAERS Safety Report 7204404-3 (Version None)
Quarter: 2010Q4

REPORT INFORMATION
  Report Type: 
  Country: None (occurrence: None)
  Receive Date: 20101220
  Receipt Date: 20101202
  Transmission Date: 20110411
  Serious: No
  Sender: FDA-Public Use
  Company Number: 10-468

PATIENT
  Age: 27 Year
  Sex: Male

DRUGS (10)
  1. ANADIN (IBUPROFEN) [Suspect]
     Indication: PRODUCT USED FOR UNKNOWN INDICATION
     Dates: start: 20020820
  2. ASPIRIN [Suspect]
  3. CODEINE [Suspect]
     Indication: PRODUCT USED FOR UNKNOWN INDICATION
     Dates: start: 20020820
  4. LOFEPRAMINE [Suspect]
     Indication: PRODUCT USED FOR UNKNOWN INDICATION
  5. IBUPROFEN [Suspect]
     Indication: PRODUCT USED FOR UNKNOWN INDICATION
     Dates: start: 20020820
  6. PAROXETINE HCL [Suspect]
     Indication: PHOBIA
     Dosage: 20 MG/DAY
     Dates: start: 19990901, end: 20021201
  7. COCAINE [Concomitant]
  8. FLUOXETINE [Concomitant]
  9. LITHIUM CARBONATE [Concomitant]
  10. METHAMPHETAMINE HYDROCHLORIDE [Concomitant]

REACTIONS (11)
  - AGGRESSION [None]
  - CONSTIPATION [None]
  - DEPRESSION [None]
  - DRUG WITHDRAWAL SYNDROME [None]
  - DRY MOUTH [None]
  - OVERDOSE [None]
  - SEXUAL DYSFUNCTION [None]
  - SOCIAL PHOBIA [None]
  - SUICIDAL IDEATION [None]
  - SUICIDE ATTEMPT [None]
  - VISION BLURRED [None]
